FAERS Safety Report 14324033 (Version 2)
Quarter: 2018Q1

REPORT INFORMATION
  Report Type: Spontaneous
  Country: JP (occurrence: JP)
  Receive Date: 20171226
  Receipt Date: 20180102
  Transmission Date: 20180509
  Serious: Yes (Other)
  Sender: FDA-Public Use
  Company Number: JP-009507513-1712JPN002411J

PATIENT
  Age: 58 Year
  Sex: Female
  Weight: 55 kg

DRUGS (4)
  1. MARZULENE-S [Concomitant]
     Active Substance: SODIUM GUALENATE
     Dosage: 2 G, TID
     Route: 048
     Dates: start: 20171130, end: 20171219
  2. STROCAIN [Concomitant]
     Active Substance: OXETHAZAINE
     Dosage: 5 MG, QD
     Route: 048
     Dates: start: 20171130
  3. DESALEX TABLETS 5MG [Suspect]
     Active Substance: DESLORATADINE
     Indication: RHINITIS ALLERGIC
     Dosage: 5 MG, QD
     Route: 048
     Dates: start: 201708, end: 20171207
  4. ATORVASTATIN [Concomitant]
     Active Substance: ATORVASTATIN
     Dosage: 5 MG, QD
     Route: 048
     Dates: start: 20130726

REACTIONS (1)
  - Hepatic function abnormal [Recovering/Resolving]

NARRATIVE: CASE EVENT DATE: 20171208
